FAERS Safety Report 23573704 (Version 1)
Quarter: 2024Q1

REPORT INFORMATION
  Report Type: Spontaneous
  Country: US (occurrence: US)
  Receive Date: 20240228
  Receipt Date: 20240228
  Transmission Date: 20240410
  Serious: No
  Sender: FDA-Public Use
  Company Number: US-RK PHARMA, INC-20230200005

PATIENT
  Sex: Female

DRUGS (1)
  1. DOXEPIN HYDROCHLORIDE [Suspect]
     Active Substance: DOXEPIN HYDROCHLORIDE
     Indication: Sleep disorder
     Dosage: 1 DOSAGE FORM, HS
     Dates: start: 2022, end: 20230115

REACTIONS (1)
  - Alopecia [Recovering/Resolving]
